FAERS Safety Report 6026829-4 (Version None)
Quarter: 2009Q1

REPORT INFORMATION
  Report Type: 
  Country: None (occurrence: None)
  Receive Date: 20090105
  Receipt Date: 20081231
  Transmission Date: 20090719
  Serious: Yes (Disabling)
  Sender: FDA-Public Use
  Company Number: AU-WYE-G02598808

PATIENT
  Sex: Female

DRUGS (1)
  1. PREMARIN [Suspect]
     Dosage: 0.625 MG
     Route: 048
     Dates: start: 20080801, end: 20081116

REACTIONS (2)
  - ABASIA [None]
  - MUSCLE SPASMS [None]
